FAERS Safety Report 6993715-2 (Version None)
Quarter: 2010Q3

REPORT INFORMATION
  Report Type: 
  Country: None (occurrence: None)
  Receive Date: 20100917
  Receipt Date: 20071213
  Transmission Date: 20110219
  Serious: Yes (Other)
  Sender: FDA-Public Use
  Company Number: US-ASTRAZENECA-2007UW06096

PATIENT
  Age: 20498 Day
  Sex: Male
  Weight: 84.7 kg

DRUGS (22)
  1. SEROQUEL [Suspect]
     Indication: SLEEP DISORDER
     Dosage: 200-600 MG
     Route: 048
     Dates: start: 20030115, end: 20060711
  2. SEROQUEL [Suspect]
     Indication: POST-TRAUMATIC STRESS DISORDER
     Dosage: 200-600 MG
     Route: 048
     Dates: start: 20030115, end: 20060711
  3. SEROQUEL [Suspect]
     Indication: ANXIETY
     Dosage: 200-600 MG
     Route: 048
     Dates: start: 20030115, end: 20060711
  4. SEROQUEL [Suspect]
     Indication: DEPRESSION
     Dosage: 200-600 MG
     Route: 048
     Dates: start: 20030115, end: 20060711
  5. SEROQUEL [Suspect]
     Dosage: 100 TO 200 MG QD
     Route: 048
     Dates: start: 20040101, end: 20060422
  6. SEROQUEL [Suspect]
     Dosage: 100 TO 200 MG QD
     Route: 048
     Dates: start: 20040101, end: 20060422
  7. SEROQUEL [Suspect]
     Dosage: 100 TO 200 MG QD
     Route: 048
     Dates: start: 20040101, end: 20060422
  8. SEROQUEL [Suspect]
     Dosage: 100 TO 200 MG QD
     Route: 048
     Dates: start: 20040101, end: 20060422
  9. ASPIRIN [Concomitant]
     Dosage: 325 MG
     Route: 048
     Dates: start: 20030416
  10. METOPROLOL SUCCINATE [Concomitant]
     Dosage: 12.5-50 MG
     Route: 048
     Dates: start: 20041215
  11. OMEPRAZOLE [Concomitant]
     Dosage: 20 MG
     Route: 048
     Dates: start: 20041215
  12. LISINOPRIL [Concomitant]
     Dosage: 2.5-10 MG
     Route: 048
     Dates: start: 20030415
  13. LOPID [Concomitant]
     Indication: HYPERTRIGLYCERIDAEMIA
     Dates: start: 20050720
  14. IMDUR [Concomitant]
     Indication: CHEST PAIN
     Dosage: 30 MG-60 MG
     Route: 048
     Dates: start: 20050720
  15. ZOCOR [Concomitant]
     Dates: start: 20050315
  16. VALPROIC ACID [Concomitant]
     Indication: MIGRAINE
     Route: 048
     Dates: start: 20030420
  17. VALPROIC ACID [Concomitant]
     Indication: POST-TRAUMATIC STRESS DISORDER
     Route: 048
     Dates: start: 20030420
  18. VALPROIC ACID [Concomitant]
     Indication: MOOD SWINGS
     Route: 048
     Dates: start: 20030420
  19. METFORMIN HCL [Concomitant]
     Route: 048
     Dates: start: 20030415
  20. LOVASTATIN [Concomitant]
     Route: 048
     Dates: start: 20030116
  21. SERTRALINE HYDROCHLORIDE [Concomitant]
     Route: 048
     Dates: start: 20030114
  22. TEMAZEPAM [Concomitant]
     Dosage: 15-30 MG
     Route: 048
     Dates: start: 20040420

REACTIONS (2)
  - PANCREATITIS ACUTE [None]
  - PANCREATITIS CHRONIC [None]
